FAERS Safety Report 6154760-2 (Version None)
Quarter: 2009Q2

REPORT INFORMATION
  Report Type: 
  Country: None (occurrence: None)
  Receive Date: 20090414
  Receipt Date: 20090409
  Transmission Date: 20091009
  Serious: No
  Sender: FDA-Public Use
  Company Number: US-B.I. PHARMACEUTICALS,INC./RIDGEFIELD-2009-BP-04456BP

PATIENT
  Age: 71 Year
  Sex: Female

DRUGS (2)
  1. MIRAPEX [Suspect]
     Indication: PARKINSON'S DISEASE
     Dosage: .125MG
     Route: 048
     Dates: start: 20081101
  2. SINEMET [Concomitant]
     Indication: PARKINSON'S DISEASE

REACTIONS (3)
  - INCORRECT DOSE ADMINISTERED [None]
  - ORAL PAIN [None]
  - TREMOR [None]
